FAERS Safety Report 4450892-5 (Version None)
Quarter: 2004Q3

REPORT INFORMATION
  Report Type: 
  Country: None (occurrence: None)
  Receive Date: 20040916
  Receipt Date: 20020102
  Transmission Date: 20050211
  Serious: Yes (Other)
  Sender: FDA-Public Use
  Company Number: US-BRISTOL-MYERS SQUIBB COMPANY-11715620

PATIENT
  Age: 46 Year
  Sex: Female

DRUGS (2)
  1. STADOL [Suspect]
     Indication: MIGRAINE
     Route: 030
     Dates: start: 19971202, end: 20010101
  2. STADOL [Suspect]
     Indication: MIGRAINE
     Route: 045
     Dates: start: 19971201, end: 20010101

REACTIONS (4)
  - DEPENDENCE [None]
  - DRUG WITHDRAWAL SYNDROME [None]
  - INFANT [None]
  - PREGNANCY [None]
